FAERS Safety Report 8982439 (Version 1)
Quarter: 2012Q4

REPORT INFORMATION
  Report Type: 
  Country: US (occurrence: US)
  Receive Date: 20121222
  Receipt Date: 20121222
  Transmission Date: 20130627
  Serious: No
  Sender: FDA-Public Use
  Company Number: US-ASTRAZENECA-2012SE88186

PATIENT
  Age: 28 Year
  Sex: Male
  Weight: 95.3 kg

DRUGS (2)
  1. SEROQUEL XR [Suspect]
     Route: 048
  2. HEADACHE MEDICINE [Concomitant]
     Indication: HEADACHE

REACTIONS (5)
  - Anxiety [Unknown]
  - Insomnia [Unknown]
  - Social phobia [Unknown]
  - Headache [Unknown]
  - Drug dose omission [Unknown]
